FAERS Safety Report 7279713-2 (Version None)
Quarter: 2011Q1

REPORT INFORMATION
  Report Type: 
  Country: None (occurrence: None)
  Receive Date: 20110203
  Receipt Date: 20110203
  Transmission Date: 20110831
  Serious: Yes (Death)
  Sender: FDA-Public Use
  Company Number: None

PATIENT
  Age: 65 Year
  Sex: Male
  Weight: 106.5953 kg

DRUGS (3)
  1. LEVAQUIN [Suspect]
     Indication: SINUSITIS
     Dosage: 1 EA 750 MG DAILY WHEN TAKING 500 2EA DAILY
     Dates: start: 20090411, end: 20090414
  2. LEVAQUIN [Suspect]
     Indication: BRONCHITIS
     Dosage: 1 EA 750 MG DAILY WHEN TAKING 500 2EA DAILY
     Dates: start: 20090411, end: 20090414
  3. LEVAQUIN [Suspect]

REACTIONS (1)
  - ARRHYTHMIA [None]
